FAERS Safety Report 23442909 (Version 1)
Quarter: 2024Q1

REPORT INFORMATION
  Report Type: Report from Study
  Country: US (occurrence: US)
  Receive Date: 20240125
  Receipt Date: 20240125
  Transmission Date: 20240410
  Serious: Yes (Hospitalization, Other)
  Sender: FDA-Public Use
  Company Number: US-UCBSA-2024003026

PATIENT

DRUGS (1)
  1. CERTOLIZUMAB PEGOL [Suspect]
     Active Substance: CERTOLIZUMAB PEGOL
     Indication: Crohn^s disease
     Dosage: UNK
     Route: 058

REACTIONS (6)
  - Pneumonia [Unknown]
  - Systemic lupus erythematosus [Unknown]
  - Hospitalisation [Unknown]
  - Dermatitis psoriasiform [Unknown]
  - Infection [Unknown]
  - Treatment noncompliance [Unknown]
